FAERS Safety Report 7623835-0 (Version None)
Quarter: 2011Q3

REPORT INFORMATION
  Report Type: 
  Country: None (occurrence: None)
  Receive Date: 20110720
  Receipt Date: 20110718
  Transmission Date: 20111222
  Serious: Yes (Other)
  Sender: FDA-Public Use
  Company Number: PT-PFIZER INC-2011158139

PATIENT
  Age: 43 Year
  Sex: Male

DRUGS (2)
  1. CLINDAMYCIN [Concomitant]
     Indication: SKIN INFECTION
  2. TYGACIL [Suspect]
     Indication: ERYSIPELAS
     Dosage: 50 MG, 2X/DAY
     Route: 042
     Dates: start: 20110701, end: 20110706

REACTIONS (2)
  - NEUTROPENIA [None]
  - LEUKOPENIA [None]
